FAERS Safety Report 24257122 (Version 2)
Quarter: 2024Q4

REPORT INFORMATION
  Report Type: Spontaneous
  Country: DE (occurrence: DE)
  Receive Date: 20240828
  Receipt Date: 20241108
  Transmission Date: 20250114
  Serious: Yes (Life-Threatening, Hospitalization, Other)
  Sender: ADVANZ PHARMA
  Company Number: DE-SANOFI-02181501

PATIENT

DRUGS (1)
  1. HYDROXYCHLOROQUINE [Suspect]
     Active Substance: HYDROXYCHLOROQUINE
     Indication: Rheumatic disorder
     Dosage: UNK (QUENSYL FILM COATED TABLET)
     Route: 048

REACTIONS (2)
  - Anaphylactic shock [Recovered/Resolved]
  - Contraindicated product administered [Unknown]
